FAERS Safety Report 7552655-0 (Version None)
Quarter: 2011Q2

REPORT INFORMATION
  Report Type: 
  Country: None (occurrence: None)
  Receive Date: 20110616
  Receipt Date: 20110607
  Transmission Date: 20111010
  Serious: Yes (Other)
  Sender: FDA-Public Use
  Company Number: DE-UCBSA-034791

PATIENT
  Sex: Female
  Weight: 70 kg

DRUGS (2)
  1. LACOSAMIDE [Suspect]
     Dosage: 5 TABL; TOTAL AMOUNT: 500MG
     Route: 048
  2. KEPPRA [Suspect]
     Dosage: 500MG; 18 TABL; TOTAL AMOUNT: 9000MG
     Route: 048

REACTIONS (3)
  - LOSS OF CONSCIOUSNESS [None]
  - SUICIDE ATTEMPT [None]
  - VOMITING [None]
